FAERS Safety Report 10173930 (Version 2)
Quarter: 2015Q3

REPORT INFORMATION
  Report Type: Spontaneous
  Country: US (occurrence: US)
  Receive Date: 20140515
  Receipt Date: 20150731
  Transmission Date: 20151125
  Serious: Yes (Death, Other)
  Sender: FDA-Public Use
  Company Number: US-INCYTE CORPORATION-2014IN001262

PATIENT
  Age: 89 Year
  Sex: Male
  Weight: 77.1 kg

DRUGS (6)
  1. OMEPRAZOLE. [Concomitant]
     Active Substance: OMEPRAZOLE
     Dosage: TAD
  2. TYLENOL EXTRA-STRENGTH ADULT [Concomitant]
     Dosage: AN
  3. ASPIRIN E.C [Concomitant]
     Active Substance: ASPIRIN
     Dosage: 81 MG TBEC( ASPIRIN) TAD
  4. JAKAFI [Suspect]
     Active Substance: RUXOLITINIB
     Indication: MYELOFIBROSIS
     Dosage: 5 MG, QD
     Route: 048
     Dates: start: 20131108, end: 201404
  5. LEVOTHYROXINE. [Concomitant]
     Active Substance: LEVOTHYROXINE
     Dosage: TAD
  6. CLARITIN [Concomitant]
     Active Substance: LORATADINE
     Dosage: TAD

REACTIONS (7)
  - Asthenia [Unknown]
  - Fall [Unknown]
  - Dyspnoea [Unknown]
  - Pain in extremity [Unknown]
  - Death [Fatal]
  - Haemoglobin decreased [Unknown]
  - Fatigue [Unknown]

NARRATIVE: CASE EVENT DATE: 20140406
